FAERS Safety Report 11141760 (Version 3)
Quarter: 2015Q3

REPORT INFORMATION
  Report Type: Spontaneous
  Country: BR (occurrence: BR)
  Receive Date: 20150527
  Receipt Date: 20150729
  Transmission Date: 20151125
  Serious: Yes (Other)
  Sender: FDA-Public Use
  Company Number: BR-PFIZER INC-2015176547

PATIENT
  Age: 31 Year
  Sex: Male
  Weight: 116 kg

DRUGS (5)
  1. DOSTINEX [Suspect]
     Active Substance: CABERGOLINE
     Indication: PROLACTINOMA
  2. CABERGOLINE. [Suspect]
     Active Substance: CABERGOLINE
     Dosage: UNK
  3. DOSTINEX [Suspect]
     Active Substance: CABERGOLINE
     Indication: BLOOD PROLACTIN INCREASED
     Dosage: 3 TABLETS OF 0.5MG PER WEEK
     Route: 048
     Dates: start: 2010, end: 2011
  4. DOSTINEX [Suspect]
     Active Substance: CABERGOLINE
     Indication: BLOOD PROLACTIN INCREASED
     Dosage: 0.5 MG, PER WEEK
     Dates: start: 2011, end: 2012
  5. DOSTINEX [Suspect]
     Active Substance: CABERGOLINE
     Indication: PROLACTINOMA

REACTIONS (8)
  - Pituitary tumour [Not Recovered/Not Resolved]
  - Disease progression [Not Recovered/Not Resolved]
  - Prolactinoma [Not Recovered/Not Resolved]
  - Blood testosterone decreased [Not Recovered/Not Resolved]
  - Galactorrhoea [Not Recovered/Not Resolved]
  - Hypothyroidism [Not Recovered/Not Resolved]
  - Abscess [Not Recovered/Not Resolved]
  - Headache [Recovered/Resolved]

NARRATIVE: CASE EVENT DATE: 2011
